FAERS Safety Report 7395045-6 (Version None)
Quarter: 2011Q2

REPORT INFORMATION
  Report Type: 
  Country: None (occurrence: None)
  Receive Date: 20110405
  Receipt Date: 20110329
  Transmission Date: 20111010
  Serious: Yes (Hospitalization)
  Sender: FDA-Public Use
  Company Number: US-PFIZER INC-2011070719

PATIENT
  Sex: Female

DRUGS (2)
  1. CALAN [Suspect]
     Indication: HYPERTENSION
  2. CALAN [Suspect]

REACTIONS (1)
  - HEART RATE IRREGULAR [None]
